FAERS Safety Report 5997293-6 (Version None)
Quarter: 2008Q4

REPORT INFORMATION
  Report Type: 
  Country: None (occurrence: None)
  Receive Date: 20081204
  Receipt Date: 20081124
  Transmission Date: 20090506
  Serious: Yes (Hospitalization)
  Sender: FDA-Public Use
  Company Number: US-JNJFOC-20070902419

PATIENT
  Age: 65 Year
  Sex: Female

DRUGS (1)
  1. DECITABINE (DECITABINE) LYOPHILIZED POWDER [Suspect]
     Indication: ACUTE MYELOID LEUKAEMIA
     Dosage: 20 MG/M2, IN 1 DAY, INTRAVENOUS
     Route: 042
     Dates: start: 20051231, end: 20070817

REACTIONS (21)
  - ABDOMINAL PAIN [None]
  - BLAST CELL COUNT INCREASED [None]
  - BLOOD ALKALINE PHOSPHATASE INCREASED [None]
  - BONE MARROW FAILURE [None]
  - CHILLS [None]
  - CORONARY ARTERY EMBOLISM [None]
  - DIABETES MELLITUS INADEQUATE CONTROL [None]
  - DIASTOLIC DYSFUNCTION [None]
  - DRUG ERUPTION [None]
  - DYSPLASIA [None]
  - FLUID OVERLOAD [None]
  - GLYCOSYLATED HAEMOGLOBIN INCREASED [None]
  - GRANULOMA [None]
  - HYPERSENSITIVITY [None]
  - LEUKAEMIA RECURRENT [None]
  - LUNG CONSOLIDATION [None]
  - PNEUMONIA FUNGAL [None]
  - POLLAKIURIA [None]
  - PULMONARY OEDEMA [None]
  - RED CELL DISTRIBUTION WIDTH INCREASED [None]
  - URINE OUTPUT DECREASED [None]
